FAERS Safety Report 8637072 (Version 3)
Quarter: 2012Q4

REPORT INFORMATION
  Report Type: 
  Country: US (occurrence: US)
  Receive Date: 20120626
  Receipt Date: 20121116
  Transmission Date: 20130627
  Serious: Yes (Other)
  Sender: FDA-Public Use
  Company Number: US-RB-041096-12

PATIENT
  Sex: Male

DRUGS (8)
  1. SUBOXONE [Suspect]
     Indication: DRUG DEPENDENCE
     Dosage: Patient^s mother stated that she always took less than 38 mg
     Route: 064
     Dates: start: 20080810, end: 200810
  2. SUBOXONE [Suspect]
     Dosage: 16mg to 24 mg daily
     Route: 064
     Dates: start: 20080810, end: 200809
  3. SUBUTEX [Suspect]
     Indication: DRUG DEPENDENCE
     Dosage: Patient^s mother stated that she always took less than 38 mg
     Route: 064
     Dates: start: 200810, end: 20090527
  4. SUBUTEX [Suspect]
     Dosage: 4mg to 20 mg daily
     Route: 064
     Dates: start: 200809, end: 20090527
  5. NICOTINE [Suspect]
     Indication: NICOTINE DEPENDENCE
     Dosage: 2 cigarettes per day
     Route: 064
     Dates: start: 200809, end: 20090527
  6. PRENATAL VITAMIN [Suspect]
     Indication: PREGNANCY
     Dosage: Dosing details unknown
     Route: 064
     Dates: start: 2008, end: 20090527
  7. STOOL SOFTENERS [Suspect]
     Indication: CONSTIPATION
     Dosage: Dosing details unknown
     Route: 064
     Dates: start: 2008, end: 20090527
  8. NAUSEA MEDICATION [Suspect]
     Indication: NAUSEA
     Dosage: Dosing details unknown
     Route: 064
     Dates: start: 2008, end: 20090527

REACTIONS (7)
  - Speech disorder developmental [Recovering/Resolving]
  - Fever neonatal [Recovered/Resolved]
  - Drug withdrawal syndrome neonatal [Recovered/Resolved]
  - Abnormal behaviour [Not Recovered/Not Resolved]
  - Disturbance in attention [Not Recovered/Not Resolved]
  - Asthma [Not Recovered/Not Resolved]
  - Foetal exposure during pregnancy [Recovered/Resolved]
